FAERS Safety Report 4457575-6 (Version None)
Quarter: 2004Q3

REPORT INFORMATION
  Report Type: 
  Country: None (occurrence: None)
  Receive Date: 20040922
  Receipt Date: 20040908
  Transmission Date: 20050211
  Serious: Yes (Hospitalization)
  Sender: FDA-Public Use
  Company Number: 2004-BP-07731AU

PATIENT
  Sex: Male

DRUGS (1)
  1. SPIRIVA [Suspect]
     Dosage: 18 MCG, IH
     Route: 055

REACTIONS (3)
  - ALLERGIC GRANULOMATOUS ANGIITIS [None]
  - EOSINOPHILIA [None]
  - MONONEURITIS [None]
